FAERS Safety Report 8743036 (Version 2)
Quarter: 2012Q4

REPORT INFORMATION
  Report Type: Report from Study
  Country: KR (occurrence: KR)
  Receive Date: 20120824
  Receipt Date: 20120830
  Transmission Date: 20130627
  Serious: Yes (Hospitalization, Other)
  Sender: FDA-Public Use
  Company Number: KR-JNJFOC-20120809556

PATIENT
  Age: 65 Year
  Sex: Female

DRUGS (8)
  1. USTEKINUMAB [Suspect]
     Indication: PSORIASIS
     Route: 058
     Dates: start: 20120109
  2. USTEKINUMAB [Suspect]
     Indication: PSORIASIS
     Route: 058
     Dates: start: 20120430
  3. DAIVOBET [Concomitant]
     Indication: PSORIASIS
     Dates: start: 2005
  4. YUHANZID [Concomitant]
     Indication: LATENT TUBERCULOSIS
     Dates: start: 20120109
  5. PYRIDOXINE [Concomitant]
     Indication: LATENT TUBERCULOSIS
     Dates: start: 20120109
  6. PROTOPIC [Concomitant]
     Indication: PSORIASIS
     Dates: start: 2005
  7. METHOTREXATE [Concomitant]
     Indication: PSORIASIS
     Dates: start: 20111129, end: 20120213
  8. FOLIC ACID [Concomitant]
     Indication: PSORIASIS
     Dates: start: 20111004, end: 20120120

REACTIONS (1)
  - Colon cancer [Not Recovered/Not Resolved]
